FAERS Safety Report 6585014-8 (Version None)
Quarter: 2010Q1

REPORT INFORMATION
  Report Type: 
  Country: None (occurrence: None)
  Receive Date: 20100204
  Receipt Date: 20100127
  Transmission Date: 20100710
  Serious: Yes (Hospitalization, Other)
  Sender: FDA-Public Use
  Company Number: 2009-201022-NL

PATIENT
  Age: 36 Year
  Sex: Female
  Weight: 136 kg

DRUGS (3)
  1. NUVARING [Suspect]
     Indication: CONTRACEPTION
     Dosage: VAG
     Route: 067
     Dates: start: 20040101, end: 20041101
  2. GREEN TEA [Concomitant]
  3. TYLENOL-500 [Concomitant]

REACTIONS (4)
  - ANAEMIA [None]
  - HEPATIC STEATOSIS [None]
  - HYPOTENSION [None]
  - PULMONARY EMBOLISM [None]
